FAERS Safety Report 4366740-8 (Version None)
Quarter: 2004Q2

REPORT INFORMATION
  Report Type: 
  Country: None (occurrence: None)
  Receive Date: 20040527
  Receipt Date: 20040518
  Transmission Date: 20050107
  Serious: Yes (Hospitalization)
  Sender: FDA-Public Use
  Company Number: 04-05-0711

PATIENT
  Age: 76 Year
  Sex: Male

DRUGS (1)
  1. CLOZAPINE [Suspect]
     Indication: TREMOR
     Dosage: 12.5-75MG QD ORAL
     Route: 048
     Dates: start: 20000101

REACTIONS (1)
  - HIP FRACTURE [None]
